FAERS Safety Report 25248076 (Version 2)
Quarter: 2025Q2

REPORT INFORMATION
  Report Type: Spontaneous
  Country: US (occurrence: US)
  Receive Date: 20250429
  Receipt Date: 20250506
  Transmission Date: 20250716
  Serious: Yes (Other)
  Sender: RANBAXY
  Company Number: US-SUN PHARMACEUTICAL INDUSTRIES LTD-2025R1-505015

PATIENT
  Age: 62 Year
  Sex: Male

DRUGS (2)
  1. FLUTICASONE [Suspect]
     Active Substance: FLUTICASONE
     Indication: Asthma exercise induced
     Route: 045
  2. LORATADINE [Suspect]
     Active Substance: LORATADINE
     Indication: Asthma exercise induced
     Route: 048

REACTIONS (1)
  - Drug ineffective [Unknown]
